FAERS Safety Report 8460021 (Version 6)
Quarter: 2013Q4

REPORT INFORMATION
  Report Type: Spontaneous
  Country: US (occurrence: US)
  Receive Date: 20120314
  Receipt Date: 20131115
  Transmission Date: 20140711
  Serious: Yes (Hospitalization, Other)
  Sender: FDA-Public Use
  Company Number: US-ASTRAZENECA-2012SE16064

PATIENT
  Age: 66 Year
  Sex: Female
  Weight: 109.3 kg

DRUGS (10)
  1. NEXIUM [Suspect]
     Indication: GASTROOESOPHAGEAL REFLUX DISEASE
     Route: 048
  2. NEXIUM [Suspect]
     Indication: GASTROOESOPHAGEAL REFLUX DISEASE
     Route: 048
     Dates: end: 20131108
  3. LEVOTHYROXINE [Concomitant]
     Indication: THYROID DISORDER
     Route: 048
     Dates: start: 1990
  4. LOSARTAN [Concomitant]
     Indication: BLOOD PRESSURE ABNORMAL
     Dosage: BID
     Route: 048
     Dates: start: 2012
  5. PROPRANOLOL [Concomitant]
     Indication: BLOOD PRESSURE ABNORMAL
     Dosage: TID
     Route: 048
  6. PROPRANOLOL [Concomitant]
     Indication: BLOOD PRESSURE ABNORMAL
     Dosage: DAILY
     Route: 048
     Dates: start: 2013
  7. BENTYL [Concomitant]
     Indication: IRRITABLE BOWEL SYNDROME
     Dates: start: 2013
  8. POTASSIUM [Concomitant]
     Indication: BLOOD POTASSIUM DECREASED
     Dates: start: 2013
  9. CALCIUM [Concomitant]
     Indication: BONE DISORDER
     Dosage: DAILY.
     Dates: start: 2012
  10. VITAMIN D3 [Concomitant]
     Indication: BONE DISORDER
     Dates: start: 2012

REACTIONS (15)
  - Rectal cancer [Unknown]
  - Vomiting [Unknown]
  - Gastrooesophageal reflux disease [Recovered/Resolved]
  - Weight increased [Unknown]
  - Blood pressure abnormal [Not Recovered/Not Resolved]
  - Weight fluctuation [Unknown]
  - Burning sensation [Unknown]
  - Irritable bowel syndrome [Unknown]
  - Sleep disorder due to a general medical condition [Unknown]
  - Blood potassium decreased [Unknown]
  - Hyperchlorhydria [Unknown]
  - Abdominal discomfort [Unknown]
  - Off label use [Unknown]
  - Intentional drug misuse [Unknown]
  - Drug dose omission [Recovered/Resolved]
